FAERS Safety Report 4695827-5 (Version None)
Quarter: 2005Q2

REPORT INFORMATION
  Report Type: 
  Country: None (occurrence: None)
  Receive Date: 20050621
  Receipt Date: 20050610
  Transmission Date: 20051028
  Serious: Yes (Congenital Anomaly, Other)
  Sender: FDA-Public Use
  Company Number: 200515536GDDC

PATIENT
  Age: 3 Year
  Sex: Male

DRUGS (1)
  1. CLEXANE [Suspect]
     Indication: ANTIPHOSPHOLIPID SYNDROME
     Route: 065
     Dates: end: 20020101

REACTIONS (26)
  - ABNORMAL DREAMS [None]
  - BRAIN STEM AUDITORY EVOKED RESPONSE ABNORMAL [None]
  - CLEFT PALATE [None]
  - CONGENITAL ANOMALY [None]
  - CONGENITAL EYE DISORDER [None]
  - CONGENITAL MUSCULOSKELETAL ANOMALY [None]
  - CRYING [None]
  - CRYPTORCHISM [None]
  - DEVELOPMENTAL DELAY [None]
  - DRUG EXPOSURE DURING PREGNANCY [None]
  - DYSPHAGIA [None]
  - EAR MALFORMATION [None]
  - ENTROPION [None]
  - FACIAL DYSMORPHISM [None]
  - FAILURE TO THRIVE [None]
  - FEEDING DISORDER [None]
  - GASTROOESOPHAGEAL REFLUX DISEASE [None]
  - HYPERTELORISM OF ORBIT [None]
  - HYPOTONIA [None]
  - LIP DISORDER [None]
  - NEONATAL DISORDER [None]
  - NOSE DEFORMITY [None]
  - OTITIS MEDIA [None]
  - PHOTOPHOBIA [None]
  - SENSORY DISTURBANCE [None]
  - TONGUE DISORDER [None]
